FAERS Safety Report 10090189 (Version 1)
Quarter: 2014Q2

REPORT INFORMATION
  Report Type: Spontaneous
  Country: US (occurrence: US)
  Receive Date: 20140421
  Receipt Date: 20140421
  Transmission Date: 20141212
  Serious: Yes (Hospitalization)
  Sender: FDA-Public Use
  Company Number: US-GLAXOSMITHKLINE-A1069270A

PATIENT
  Age: 76 Year
  Sex: Female

DRUGS (9)
  1. ADVAIR [Suspect]
     Indication: CHRONIC OBSTRUCTIVE PULMONARY DISEASE
     Dosage: 1PUFF PER DAY
     Route: 055
     Dates: start: 2011
  2. ALLOPURINOL [Concomitant]
  3. ATENOLOL [Concomitant]
  4. AZITHROMYCIN [Concomitant]
  5. POTASSIUM [Concomitant]
  6. CALCIUM [Concomitant]
  7. HYDROCHLOROTHIAZIDE + TRIAMTERENE [Concomitant]
  8. MULTIVITAMIN [Concomitant]
  9. PREDNISONE [Concomitant]

REACTIONS (4)
  - Chronic obstructive pulmonary disease [Unknown]
  - Respiration abnormal [Not Recovered/Not Resolved]
  - Dyspnoea [Not Recovered/Not Resolved]
  - Drug administration error [Not Recovered/Not Resolved]
